FAERS Safety Report 9197326 (Version 1)
Quarter: 2013Q1

REPORT INFORMATION
  Report Type: Spontaneous
  Country: US (occurrence: None)
  Receive Date: 20120709
  Receipt Date: 20120709
  Transmission Date: 20140127
  Serious: No
  Sender: FDA-Public Use
  Company Number: 2012HGS-003519

PATIENT
  Age: 50 Year
  Sex: Female
  Weight: 56.25 kg

DRUGS (9)
  1. BENLYSTA [Suspect]
     Indication: SYSTEMIC LUPUS ERYTHEMATOSUS
     Dosage: 1 IN 28 D
     Route: 041
     Dates: start: 20111017
  2. CARVEDILOL (CARVEDILOL) (CARVEDILOL) [Concomitant]
  3. BENICAR (OLMESARTAN MEDOXOMIL) (OLMESARTAN MEDOXOMIL) [Concomitant]
  4. LOVASTATIN (LOVASTATIN) [Concomitant]
  5. ASPIRIN (ACETYLSALICYLIC ACID) (ACETYLSALICYLIC ACID) [Concomitant]
  6. ALENDRONATE (ALENDRONATE SODIUM) (ALENDRONATE SODIUM) [Concomitant]
  7. CALCIUM PLUS VITAMIN D (CALCIUM D3 (COLECALCIFEROL, CALCIUM) [Concomitant]
  8. RANITIDINE (RANITIDINE) (RANITIDINE) [Concomitant]
  9. TIMOLOL (TIMOLOL) (TIMOLOL) [Concomitant]

REACTIONS (3)
  - Alopecia [None]
  - Arthralgia [None]
  - Pain in extremity [None]
